FAERS Safety Report 18549173 (Version 1)
Quarter: 2020Q4

REPORT INFORMATION
  Report Type: Spontaneous
  Country: FR (occurrence: FR)
  Receive Date: 20201126
  Receipt Date: 20201126
  Transmission Date: 20210114
  Serious: Yes (Hospitalization)
  Sender: FDA-Public Use
  Company Number: FR-TEVA-2020-FR-1851732

PATIENT
  Age: 76 Year
  Sex: Female
  Weight: 107 kg

DRUGS (3)
  1. FUROSEMIDE. [Interacting]
     Active Substance: FUROSEMIDE
     Indication: HYPERTENSION
     Dosage: 120MG
     Route: 048
     Dates: end: 20200917
  2. PROFENID 100 MG, COMPRIME PELLICULE [Interacting]
     Active Substance: KETOPROFEN
     Indication: BACK PAIN
     Dosage: UNIT DOSE 200MG
     Route: 048
     Dates: start: 20200915, end: 20200917
  3. ENALAPRIL (MALEATE D) [Suspect]
     Active Substance: ENALAPRIL MALEATE
     Indication: HYPERTENSION
     Dosage: UNIT DOSE 10MG
     Route: 048
     Dates: end: 20200917

REACTIONS (2)
  - Drug interaction [Unknown]
  - Acute kidney injury [Not Recovered/Not Resolved]

NARRATIVE: CASE EVENT DATE: 20200917
